FAERS Safety Report 4971184-1 (Version None)
Quarter: 2006Q1

REPORT INFORMATION
  Report Type: 
  Country: None (occurrence: None)
  Receive Date: 20060216
  Receipt Date: 20040204
  Transmission Date: 20060701
  Serious: Yes (Hospitalization)
  Sender: FDA-Public Use
  Company Number: 2003IM000658

PATIENT
  Age: 54 Year
  Sex: Female
  Weight: 77.1115 kg

DRUGS (10)
  1. INTERFERON GAMMA-1B [Suspect]
     Indication: OVARIAN CANCER
     Dosage: 100 UG, TIW, SUBCUTANEOUS
     Route: 058
     Dates: start: 20030611, end: 20030613
  2. CARBOPLATIN [Suspect]
     Indication: OVARIAN CANCER
     Dosage: 948 MG, Q3W, INTRAVENOUS
     Route: 042
     Dates: start: 20030611, end: 20030611
  3. PACLITAXEL [Suspect]
     Indication: OVARIAN CANCER
     Dosage: 259 MG, Q3W, INTRAVENOUS
     Route: 042
     Dates: start: 20030611, end: 20030611
  4. WARFARIN SODIUM [Suspect]
     Dosage: 2.5 MG, QHS, ORAL
     Route: 048
     Dates: start: 20030401, end: 20030614
  5. LISINOPRIL [Concomitant]
  6. ZOCOR [Concomitant]
  7. COUMADIN [Concomitant]
  8. ACTOS [Concomitant]
  9. ZOFRAN [Concomitant]
  10. ACETAMINOPHEN [Concomitant]

REACTIONS (4)
  - ANAEMIA [None]
  - INTERNATIONAL NORMALISED RATIO INCREASED [None]
  - NAUSEA [None]
  - VOMITING [None]
